FAERS Safety Report 21326548 (Version 1)
Quarter: 2022Q3

REPORT INFORMATION
  Report Type: Spontaneous
  Country: IN (occurrence: IN)
  Receive Date: 20220913
  Receipt Date: 20220913
  Transmission Date: 20221026
  Serious: Yes (Hospitalization)
  Sender: FDA-Public Use
  Company Number: IN-SUN PHARMACEUTICAL INDUSTRIES LTD-2022R1-354546

PATIENT
  Age: 32 Year
  Sex: Male

DRUGS (8)
  1. METFORMIN [Suspect]
     Active Substance: METFORMIN HYDROCHLORIDE
     Indication: Glucose tolerance impaired
     Dosage: 500 MILLIGRAM, BID
     Route: 065
  2. AMOXICILLIN [Concomitant]
     Active Substance: AMOXICILLIN
     Indication: Cutaneous vasculitis
     Dosage: UNK
     Route: 065
  3. CALAMINE [Concomitant]
     Active Substance: CALAMINE\FERRIC OXIDE RED\ZINC OXIDE
     Indication: Cutaneous vasculitis
     Dosage: UNK
     Route: 061
  4. CHLORPHENIRAMINE MALEATE [Concomitant]
     Active Substance: CHLORPHENIRAMINE MALEATE
     Indication: Cutaneous vasculitis
     Dosage: UNK (20 MG)
     Route: 065
  5. CETIRIZINE [Concomitant]
     Active Substance: CETIRIZINE HYDROCHLORIDE
     Indication: Cutaneous vasculitis
     Dosage: 10 MILLIGRAM, BID
     Route: 065
  6. MUPIROCIN [Concomitant]
     Active Substance: MUPIROCIN
     Indication: Cutaneous vasculitis
     Dosage: UNK
     Route: 061
  7. PHENOBARBITAL\PHENYTOIN [Concomitant]
     Active Substance: PHENOBARBITAL\PHENYTOIN
     Indication: Seizure
     Dosage: UNK (50 MG + 100 MG, ONCE AT NIGHT)
     Route: 065
  8. CLAVULANATE POTASSIUM [Concomitant]
     Active Substance: CLAVULANATE POTASSIUM
     Indication: Cutaneous vasculitis
     Dosage: UNK (625 MG)
     Route: 065

REACTIONS (1)
  - Condition aggravated [Unknown]
